FAERS Safety Report 9445543 (Version 1)
Quarter: 2013Q3

REPORT INFORMATION
  Report Type: Spontaneous
  Country: GB (occurrence: GB)
  Receive Date: 20130807
  Receipt Date: 20130807
  Transmission Date: 20140515
  Serious: Yes (Other)
  Sender: FDA-Public Use
  Company Number: GB-TEVA-422751ISR

PATIENT
  Sex: Male

DRUGS (3)
  1. DIAZEPAM [Suspect]
     Indication: PRODUCT USED FOR UNKNOWN INDICATION
     Dosage: TOOK ABOUT 5 TABLETS; DOSE UNKNOWN
     Route: 048
     Dates: start: 20120820, end: 20120820
  2. SUBUTEX [Suspect]
     Indication: PRODUCT USED FOR UNKNOWN INDICATION
     Dosage: DOSING DETAILS UNKNOWN. FORM: SUBLINGUAL TABLET
     Route: 065
     Dates: start: 20120820, end: 20120820
  3. CANNABIS [Suspect]
     Indication: PRODUCT USED FOR UNKNOWN INDICATION
     Dosage: SMOKED UNKNOWN AMOUNT OF CANNABIS
     Dates: start: 20120820, end: 20120820

REACTIONS (4)
  - Loss of consciousness [Recovered/Resolved]
  - Substance abuse [Recovered/Resolved]
  - Wrong technique in drug usage process [Recovered/Resolved]
  - Drug abuse [Recovered/Resolved]
